FAERS Safety Report 17275574 (Version 1)
Quarter: 2020Q1

REPORT INFORMATION
  Report Type: Spontaneous
  Country: CA (occurrence: CA)
  Receive Date: 20200116
  Receipt Date: 20200116
  Transmission Date: 20200409
  Serious: Yes (Other)
  Sender: FDA-Public Use
  Company Number: CA-AUROBINDO-AUR-APL-2020-002502

PATIENT
  Sex: Male

DRUGS (1)
  1. PANTOPRAZOLE [Suspect]
     Active Substance: PANTOPRAZOLE
     Indication: PRODUCT USED FOR UNKNOWN INDICATION
     Dosage: UNK
     Route: 065

REACTIONS (10)
  - Syncope [Unknown]
  - Amnesia [Unknown]
  - Dysgeusia [Unknown]
  - Diarrhoea [Unknown]
  - Flatulence [Unknown]
  - Hallucination, visual [Unknown]
  - Insomnia [Unknown]
  - Dizziness [Unknown]
  - Oropharyngeal pain [Unknown]
  - Weight decreased [Unknown]
